FAERS Safety Report 7771535-9 (Version None)
Quarter: 2011Q3

REPORT INFORMATION
  Report Type: 
  Country: None (occurrence: None)
  Receive Date: 20110922
  Receipt Date: 20110413
  Transmission Date: 20111222
  Serious: No
  Sender: FDA-Public Use
  Company Number: US-ASTRAZENECA-2011SE21605

PATIENT
  Age: 13885 Day
  Sex: Male

DRUGS (4)
  1. SEROQUEL [Suspect]
     Route: 048
     Dates: start: 20081103
  2. CITALOPRAM HYDROBROMIDE [Concomitant]
     Dates: start: 20090512
  3. AMLODIPINE [Concomitant]
     Dates: start: 20101222
  4. PENICILLIN VK [Concomitant]
     Dates: start: 20101222

REACTIONS (3)
  - TYPE 2 DIABETES MELLITUS [None]
  - HYPERTENSION [None]
  - BODY TINEA [None]
